FAERS Safety Report 19172486 (Version 1)
Quarter: 2021Q2

REPORT INFORMATION
  Report Type: Spontaneous
  Country: US (occurrence: US)
  Receive Date: 20210422
  Receipt Date: 20210422
  Transmission Date: 20210717
  Serious: Yes (Other)
  Sender: FDA-Public Use
  Company Number: None

PATIENT
  Age: 72 Year
  Sex: Female
  Weight: 57.6 kg

DRUGS (1)
  1. ALENDRONATE SODIUM. [Suspect]
     Active Substance: ALENDRONATE SODIUM
     Indication: BONE DENSITY DECREASED
     Dosage: ?          OTHER FREQUENCY:1/WK FOR 4 WKS;?
     Route: 048
     Dates: start: 20210415, end: 20210415

REACTIONS (4)
  - Pain in extremity [None]
  - Gait disturbance [None]
  - Arthralgia [None]
  - Groin pain [None]

NARRATIVE: CASE EVENT DATE: 20210415
